FAERS Safety Report 11944378 (Version 1)
Quarter: 2016Q1

REPORT INFORMATION
  Report Type: Spontaneous
  Country: US (occurrence: US)
  Receive Date: 20160125
  Receipt Date: 20160125
  Transmission Date: 20160526
  Serious: No
  Sender: FDA-Public Use
  Company Number: US-BAYER-2016-014335

PATIENT
  Age: 73 Year
  Sex: Female
  Weight: 76.19 kg

DRUGS (1)
  1. CLARITIN REDITABS [Suspect]
     Active Substance: LORATADINE
     Indication: SINUS DISORDER
     Dosage: 1 DF, QD
     Route: 048

REACTIONS (2)
  - Product taste abnormal [None]
  - Product use issue [Unknown]
